FAERS Safety Report 4287755-4 (Version None)
Quarter: 2004Q1

REPORT INFORMATION
  Report Type: 
  Country: None (occurrence: None)
  Receive Date: 20040209
  Receipt Date: 20030915
  Transmission Date: 20041129
  Serious: No
  Sender: FDA-Public Use
  Company Number: US-GLAXOSMITHKLINE-A0425916A

PATIENT
  Age: 56 Year
  Sex: Female

DRUGS (7)
  1. PAXIL [Suspect]
     Indication: DEPRESSION
     Dosage: 25MG PER DAY
     Route: 048
     Dates: start: 20020101
  2. ZYRTEC [Concomitant]
  3. SINGULAIR [Concomitant]
  4. LASIX [Concomitant]
  5. PRILOSEC [Concomitant]
  6. FOSAMAX [Concomitant]
  7. BLOOD PRESSURE MEDICATION [Concomitant]

REACTIONS (1)
  - INSOMNIA [None]
